FAERS Safety Report 10687965 (Version 1)
Quarter: 2015Q1

REPORT INFORMATION
  Report Type: Spontaneous
  Country: CH (occurrence: CH)
  Receive Date: 20150102
  Receipt Date: 20150102
  Transmission Date: 20150720
  Serious: Yes (Hospitalization, Other)
  Sender: FDA-Public Use
  Company Number: CH-BRISTOL-MYERS SQUIBB COMPANY-BMS-2014-004084

PATIENT
  Age: 80 Year
  Sex: Male

DRUGS (11)
  1. SORTIS [Concomitant]
     Active Substance: ATORVASTATIN
  2. PRADIF [Concomitant]
  3. DIGOXINE [Concomitant]
     Active Substance: DIGOXIN
  4. TOREM                              /01036501/ [Concomitant]
     Active Substance: TORSEMIDE
  5. CONCOR [Concomitant]
     Active Substance: BISOPROLOL FUMARATE
  6. CITALOPRAM [Concomitant]
     Active Substance: CITALOPRAM HYDROBROMIDE
  7. EUTHYROX [Concomitant]
     Active Substance: LEVOTHYROXINE SODIUM
  8. PANTOPRAZOLE [Concomitant]
     Active Substance: PANTOPRAZOLE SODIUM
  9. METOLAZON [Concomitant]
     Active Substance: METOLAZONE
  10. ELIQUIS [Suspect]
     Active Substance: APIXABAN
     Dosage: 2.5 MG, BID
     Route: 048
  11. TRITTICO [Concomitant]
     Active Substance: TRAZODONE HYDROCHLORIDE

REACTIONS (3)
  - Epistaxis [Recovered/Resolved]
  - Anaemia [Unknown]
  - Angiodysplasia [Unknown]

NARRATIVE: CASE EVENT DATE: 201409
